FAERS Safety Report 7929910 (Version 3)
Quarter: 2014Q1

REPORT INFORMATION
  Report Type: Spontaneous
  Country: US (occurrence: US)
  Receive Date: 20110504
  Receipt Date: 20140327
  Transmission Date: 20141002
  Serious: Yes (Hospitalization)
  Sender: FDA-Public Use
  Company Number: US-ALEXION-A201100540

PATIENT
  Age: 47 Year
  Sex: Male

DRUGS (1)
  1. SOLIRIS 300MG [Suspect]
     Indication: PAROXYSMAL NOCTURNAL HAEMOGLOBINURIA
     Dosage: 900 MG Q12DAYS
     Route: 042

REACTIONS (8)
  - Platelet count decreased [Unknown]
  - Anaemia [Unknown]
  - Bone marrow disorder [Unknown]
  - Aplastic anaemia [Unknown]
  - Haemoglobin decreased [Unknown]
  - Blood iron increased [Unknown]
  - Transfusion reaction [Unknown]
  - Headache [Unknown]
